FAERS Safety Report 8206021-5 (Version None)
Quarter: 2012Q1

REPORT INFORMATION
  Report Type: 
  Country: None (occurrence: None)
  Receive Date: 20120313
  Receipt Date: 20120229
  Transmission Date: 20120608
  Serious: Yes (Hospitalization, Disabling)
  Sender: FDA-Public Use
  Company Number: FR-MYLANLABS-2012S1004439

PATIENT
  Age: 58 Year
  Sex: Male

DRUGS (9)
  1. CLORAZEPATE DIPOTASSIUM [Concomitant]
     Indication: PREMEDICATION
  2. CISPLATIN [Suspect]
     Indication: LUNG NEOPLASM MALIGNANT
     Route: 042
     Dates: start: 20111219
  3. ETOPOSIDE [Suspect]
     Indication: LUNG NEOPLASM MALIGNANT
     Route: 042
     Dates: start: 20111219, end: 20111221
  4. ETOPOSIDE [Suspect]
     Dates: start: 20120109, end: 20120111
  5. CHLORPROMAZINE HCL [Concomitant]
     Indication: PREMEDICATION
  6. GRANISETRON [Concomitant]
     Indication: PREMEDICATION
  7. NEULASTA [Concomitant]
     Dates: start: 20111222, end: 20120112
  8. CISPLATIN [Suspect]
     Dosage: DOSE UNIT:158 MILLIGRAMS PER DAY*
     Dates: start: 20120109
  9. METHYLPREDNISOLONE [Concomitant]
     Indication: PREMEDICATION

REACTIONS (1)
  - PAPILLOEDEMA [None]
